FAERS Safety Report 20884317 (Version 1)
Quarter: 2022Q2

REPORT INFORMATION
  Report Type: Spontaneous
  Country: US (occurrence: None)
  Receive Date: 20220527
  Receipt Date: 20220527
  Transmission Date: 20220720
  Serious: Yes (Death)
  Sender: FDA-Public Use
  Company Number: None

PATIENT
  Age: 59 Year
  Sex: Male
  Weight: 110.2 kg

DRUGS (11)
  1. CAPECITABINE [Suspect]
     Active Substance: CAPECITABINE
     Indication: Prostate cancer
     Dates: start: 20211110, end: 20220517
  2. ZYTIGA [Suspect]
     Active Substance: ABIRATERONE ACETATE
     Indication: Prostate cancer
     Dates: start: 20200807, end: 20220517
  3. Eliqiuis 5mg [Concomitant]
  4. FOLIC ACID [Concomitant]
     Active Substance: FOLIC ACID
  5. Senna Plus 8.6-50mg [Concomitant]
  6. OXYCODONE [Concomitant]
     Active Substance: OXYCODONE
  7. ONDANSETRON [Concomitant]
     Active Substance: ONDANSETRON
  8. Oxycontin 40mg [Concomitant]
  9. QUETIAPINE [Concomitant]
     Active Substance: QUETIAPINE
  10. MORPHINE SULFATE [Concomitant]
     Active Substance: MORPHINE SULFATE
  11. Vitamin B 12 1000mcg [Concomitant]

REACTIONS (1)
  - Death [None]

NARRATIVE: CASE EVENT DATE: 20220517
